FAERS Safety Report 15804256 (Version 1)
Quarter: 2019Q1

REPORT INFORMATION
  Report Type: Other
  Country: US (occurrence: US)
  Receive Date: 20190109
  Receipt Date: 20190109
  Transmission Date: 20190417
  Serious: Yes (Hospitalization)
  Sender: FDA-Public Use
  Company Number: US-STASON PHARMACEUTICALS, INC.-2061025

PATIENT
  Age: 14 Year
  Sex: Male
  Weight: 68 kg

DRUGS (2)
  1. RUXOLITINIB [Suspect]
     Active Substance: RUXOLITINIB
  2. MERCAPTOPURINE. [Suspect]
     Active Substance: MERCAPTOPURINE

REACTIONS (9)
  - Nausea [None]
  - Weight decreased [None]
  - Neutropenia [None]
  - Gastroenteritis [None]
  - Diarrhoea [None]
  - Vomiting [None]
  - Decreased appetite [None]
  - Pyrexia [None]
  - Fatigue [None]
